FAERS Safety Report 17996367 (Version 3)
Quarter: 2022Q2

REPORT INFORMATION
  Report Type: Spontaneous
  Country: US (occurrence: US)
  Receive Date: 20200708
  Receipt Date: 20220608
  Transmission Date: 20220721
  Serious: Yes (Other)
  Sender: FDA-Public Use
  Company Number: US-JNJFOC-20200710471

PATIENT
  Age: 4 Decade
  Sex: Female

DRUGS (20)
  1. ELMIRON [Suspect]
     Active Substance: PENTOSAN POLYSULFATE SODIUM
     Indication: Cystitis interstitial
     Dosage: IN 2003, 100 MG 3 TIMES A DAY, REDUCED TO 2 TIMES A DAY AND THEN INCREASED TO 3 TIMES A DAY
     Route: 048
     Dates: start: 1998, end: 201201
  2. ELMIRON [Suspect]
     Active Substance: PENTOSAN POLYSULFATE SODIUM
     Route: 048
     Dates: start: 201210, end: 201311
  3. ELMIRON [Suspect]
     Active Substance: PENTOSAN POLYSULFATE SODIUM
     Route: 048
     Dates: start: 201312, end: 201409
  4. ELMIRON [Suspect]
     Active Substance: PENTOSAN POLYSULFATE SODIUM
     Route: 048
     Dates: start: 201504, end: 201504
  5. ELMIRON [Suspect]
     Active Substance: PENTOSAN POLYSULFATE SODIUM
     Route: 048
     Dates: start: 201508, end: 201509
  6. ELMIRON [Suspect]
     Active Substance: PENTOSAN POLYSULFATE SODIUM
     Route: 048
     Dates: start: 201604, end: 201605
  7. ELMIRON [Suspect]
     Active Substance: PENTOSAN POLYSULFATE SODIUM
     Route: 048
     Dates: end: 2019
  8. AMITRIPTYLINE [Concomitant]
     Active Substance: AMITRIPTYLINE
     Indication: Pain management
     Dates: start: 201205, end: 201412
  9. AMITRIPTYLINE [Concomitant]
     Active Substance: AMITRIPTYLINE
     Dates: start: 201503, end: 201511
  10. AMITRIPTYLINE [Concomitant]
     Active Substance: AMITRIPTYLINE
     Dates: start: 201601, end: 201603
  11. AMITRIPTYLINE [Concomitant]
     Active Substance: AMITRIPTYLINE
     Dates: start: 201604, end: 201610
  12. AMITRIPTYLINE [Concomitant]
     Active Substance: AMITRIPTYLINE
     Dates: start: 201611, end: 201807
  13. AMITRIPTYLINE [Concomitant]
     Active Substance: AMITRIPTYLINE
     Dates: start: 201808, end: 201908
  14. LISINOPRIL [Concomitant]
     Active Substance: LISINOPRIL
     Indication: Hypertension
     Dates: start: 201210, end: 201302
  15. LISINOPRIL [Concomitant]
     Active Substance: LISINOPRIL
     Dates: start: 201303, end: 201410
  16. LISINOPRIL [Concomitant]
     Active Substance: LISINOPRIL
     Dates: start: 201503, end: 201509
  17. LISINOPRIL [Concomitant]
     Active Substance: LISINOPRIL
     Dates: start: 201601, end: 201603
  18. LISINOPRIL [Concomitant]
     Active Substance: LISINOPRIL
     Dates: start: 201604, end: 201606
  19. LISINOPRIL [Concomitant]
     Active Substance: LISINOPRIL
     Dates: start: 201607, end: 201609
  20. LISINOPRIL [Concomitant]
     Active Substance: LISINOPRIL
     Dates: start: 201611, end: 201802

REACTIONS (3)
  - Age-related macular degeneration [Not Recovered/Not Resolved]
  - Maculopathy [Unknown]
  - Off label use [Unknown]

NARRATIVE: CASE EVENT DATE: 19980101
